FAERS Safety Report 4582559-7 (Version None)
Quarter: 2005Q1

REPORT INFORMATION
  Report Type: 
  Country: None (occurrence: None)
  Receive Date: 20050215
  Receipt Date: 20050126
  Transmission Date: 20050727
  Serious: Yes (Other)
  Sender: FDA-Public Use
  Company Number: JP-BRISTOL-MYERS SQUIBB COMPANY-12858619

PATIENT
  Age: 20 Year
  Sex: Male

DRUGS (1)
  1. IFOMIDE [Suspect]
     Indication: BONE SARCOMA
     Dosage: START DATE:  10-APR-2001.  DURATION: 6 DAYS
     Route: 041
     Dates: start: 20010410, end: 20010415

REACTIONS (11)
  - ABNORMAL BEHAVIOUR [None]
  - CONFUSIONAL STATE [None]
  - ENCEPHALOPATHY [None]
  - FAECAL INCONTINENCE [None]
  - GLARE [None]
  - HALLUCINATION, VISUAL [None]
  - HYPOAESTHESIA [None]
  - MENTAL IMPAIRMENT [None]
  - MUTISM [None]
  - SOLILOQUY [None]
  - URINARY INCONTINENCE [None]
